FAERS Safety Report 24790135 (Version 2)
Quarter: 2025Q1

REPORT INFORMATION
  Report Type: Spontaneous
  Country: CA (occurrence: CA)
  Receive Date: 20241230
  Receipt Date: 20250327
  Transmission Date: 20250408
  Serious: Yes (Other)
  Sender: MYLAN
  Company Number: CA-MYLANLABS-2024M1116172

PATIENT
  Age: 53 Year
  Sex: Male

DRUGS (268)
  1. CELEBREX [Suspect]
     Active Substance: CELECOXIB
     Indication: Product used for unknown indication
  2. CELEBREX [Suspect]
     Active Substance: CELECOXIB
     Route: 065
  3. CELEBREX [Suspect]
     Active Substance: CELECOXIB
     Route: 065
  4. CELEBREX [Suspect]
     Active Substance: CELECOXIB
  5. GABAPENTIN [Suspect]
     Active Substance: GABAPENTIN
     Indication: Product used for unknown indication
  6. GABAPENTIN [Suspect]
     Active Substance: GABAPENTIN
     Route: 065
  7. GABAPENTIN [Suspect]
     Active Substance: GABAPENTIN
     Route: 065
  8. GABAPENTIN [Suspect]
     Active Substance: GABAPENTIN
  9. MORPHINE [Suspect]
     Active Substance: MORPHINE
     Indication: Migraine
  10. MORPHINE [Suspect]
     Active Substance: MORPHINE
     Route: 065
  11. MORPHINE [Suspect]
     Active Substance: MORPHINE
     Route: 065
  12. MORPHINE [Suspect]
     Active Substance: MORPHINE
  13. VENLAFAXINE [Suspect]
     Active Substance: VENLAFAXINE HYDROCHLORIDE
     Indication: Migraine
  14. VENLAFAXINE [Suspect]
     Active Substance: VENLAFAXINE HYDROCHLORIDE
     Route: 065
  15. VENLAFAXINE [Suspect]
     Active Substance: VENLAFAXINE HYDROCHLORIDE
     Route: 065
  16. VENLAFAXINE [Suspect]
     Active Substance: VENLAFAXINE HYDROCHLORIDE
  17. ACETAMINOPHEN [Suspect]
     Active Substance: ACETAMINOPHEN
     Indication: Migraine
  18. ACETAMINOPHEN [Suspect]
     Active Substance: ACETAMINOPHEN
     Route: 065
  19. ACETAMINOPHEN [Suspect]
     Active Substance: ACETAMINOPHEN
     Route: 065
  20. ACETAMINOPHEN [Suspect]
     Active Substance: ACETAMINOPHEN
  21. ALMOTRIPTAN [Suspect]
     Active Substance: ALMOTRIPTAN
     Indication: Product used for unknown indication
  22. ALMOTRIPTAN [Suspect]
     Active Substance: ALMOTRIPTAN
     Route: 065
  23. ALMOTRIPTAN [Suspect]
     Active Substance: ALMOTRIPTAN
     Route: 065
  24. ALMOTRIPTAN [Suspect]
     Active Substance: ALMOTRIPTAN
  25. AMITRIPTYLINE [Suspect]
     Active Substance: AMITRIPTYLINE
     Indication: Product used for unknown indication
  26. AMITRIPTYLINE [Suspect]
     Active Substance: AMITRIPTYLINE
     Route: 065
  27. AMITRIPTYLINE [Suspect]
     Active Substance: AMITRIPTYLINE
     Route: 065
  28. AMITRIPTYLINE [Suspect]
     Active Substance: AMITRIPTYLINE
  29. BOTOX [Suspect]
     Active Substance: ONABOTULINUMTOXINA
     Indication: Product used for unknown indication
     Route: 030
  30. BOTOX [Suspect]
     Active Substance: ONABOTULINUMTOXINA
  31. BOTOX [Suspect]
     Active Substance: ONABOTULINUMTOXINA
  32. BOTOX [Suspect]
     Active Substance: ONABOTULINUMTOXINA
     Route: 030
  33. BOTOX [Suspect]
     Active Substance: ONABOTULINUMTOXINA
     Route: 065
  34. BOTOX [Suspect]
     Active Substance: ONABOTULINUMTOXINA
  35. BOTOX [Suspect]
     Active Substance: ONABOTULINUMTOXINA
  36. BOTOX [Suspect]
     Active Substance: ONABOTULINUMTOXINA
     Route: 065
  37. BOTOX [Suspect]
     Active Substance: ONABOTULINUMTOXINA
     Dosage: UNK, QD (1 EVERY 1 DAYS)
     Route: 065
  38. BOTOX [Suspect]
     Active Substance: ONABOTULINUMTOXINA
     Dosage: UNK, QD (1 EVERY 1 DAYS)
     Route: 065
  39. BOTOX [Suspect]
     Active Substance: ONABOTULINUMTOXINA
     Dosage: UNK, QD (1 EVERY 1 DAYS)
  40. BOTOX [Suspect]
     Active Substance: ONABOTULINUMTOXINA
     Dosage: UNK, QD (1 EVERY 1 DAYS)
  41. BOTULINUM TOXIN TYPE A [Suspect]
     Active Substance: BOTULINUM TOXIN TYPE A
     Indication: Product used for unknown indication
  42. BOTULINUM TOXIN TYPE A [Suspect]
     Active Substance: BOTULINUM TOXIN TYPE A
     Route: 030
  43. BOTULINUM TOXIN TYPE A [Suspect]
     Active Substance: BOTULINUM TOXIN TYPE A
     Route: 030
  44. BOTULINUM TOXIN TYPE A [Suspect]
     Active Substance: BOTULINUM TOXIN TYPE A
  45. CODEINE [Suspect]
     Active Substance: CODEINE
     Indication: Migraine
  46. CODEINE [Suspect]
     Active Substance: CODEINE
     Route: 065
  47. CODEINE [Suspect]
     Active Substance: CODEINE
     Route: 065
  48. CODEINE [Suspect]
     Active Substance: CODEINE
  49. DEMEROL [Suspect]
     Active Substance: MEPERIDINE HYDROCHLORIDE
     Indication: Product used for unknown indication
  50. DEMEROL [Suspect]
     Active Substance: MEPERIDINE HYDROCHLORIDE
     Route: 065
  51. DEMEROL [Suspect]
     Active Substance: MEPERIDINE HYDROCHLORIDE
     Route: 065
  52. DEMEROL [Suspect]
     Active Substance: MEPERIDINE HYDROCHLORIDE
  53. DICLOFENAC [Suspect]
     Active Substance: DICLOFENAC
     Indication: Migraine
  54. DICLOFENAC [Suspect]
     Active Substance: DICLOFENAC
     Route: 065
  55. DICLOFENAC [Suspect]
     Active Substance: DICLOFENAC
     Route: 065
  56. DICLOFENAC [Suspect]
     Active Substance: DICLOFENAC
  57. DIHYDROERGOTAMINE MESYLATE [Suspect]
     Active Substance: DIHYDROERGOTAMINE MESYLATE
     Indication: Migraine
  58. DIHYDROERGOTAMINE MESYLATE [Suspect]
     Active Substance: DIHYDROERGOTAMINE MESYLATE
     Route: 065
  59. DIHYDROERGOTAMINE MESYLATE [Suspect]
     Active Substance: DIHYDROERGOTAMINE MESYLATE
     Route: 065
  60. DIHYDROERGOTAMINE MESYLATE [Suspect]
     Active Substance: DIHYDROERGOTAMINE MESYLATE
  61. DULOXETINE [Suspect]
     Active Substance: DULOXETINE
     Indication: Migraine
  62. DULOXETINE [Suspect]
     Active Substance: DULOXETINE
     Route: 065
  63. DULOXETINE [Suspect]
     Active Substance: DULOXETINE
     Route: 065
  64. DULOXETINE [Suspect]
     Active Substance: DULOXETINE
  65. OXYCODONE [Suspect]
     Active Substance: OXYCODONE
     Indication: Migraine
     Route: 065
  66. OXYCODONE [Suspect]
     Active Substance: OXYCODONE
  67. ESOMEPRAZOLE [Suspect]
     Active Substance: ESOMEPRAZOLE
     Indication: Product used for unknown indication
  68. ESOMEPRAZOLE [Suspect]
     Active Substance: ESOMEPRAZOLE
     Route: 048
  69. ESOMEPRAZOLE [Suspect]
     Active Substance: ESOMEPRAZOLE
     Route: 048
  70. ESOMEPRAZOLE [Suspect]
     Active Substance: ESOMEPRAZOLE
  71. HYDROMORPHONE [Suspect]
     Active Substance: HYDROMORPHONE
     Indication: Migraine
  72. HYDROMORPHONE [Suspect]
     Active Substance: HYDROMORPHONE
     Route: 065
  73. HYDROMORPHONE [Suspect]
     Active Substance: HYDROMORPHONE
     Route: 065
  74. HYDROMORPHONE [Suspect]
     Active Substance: HYDROMORPHONE
  75. IBUPROFEN [Suspect]
     Active Substance: IBUPROFEN
     Indication: Product used for unknown indication
  76. IBUPROFEN [Suspect]
     Active Substance: IBUPROFEN
     Route: 065
  77. IBUPROFEN [Suspect]
     Active Substance: IBUPROFEN
     Route: 065
  78. IBUPROFEN [Suspect]
     Active Substance: IBUPROFEN
  79. KETAMINE [Suspect]
     Active Substance: KETAMINE
     Indication: Migraine
     Route: 065
  80. KETAMINE [Suspect]
     Active Substance: KETAMINE
  81. KETAMINE [Suspect]
     Active Substance: KETAMINE
  82. KETAMINE [Suspect]
     Active Substance: KETAMINE
     Route: 065
  83. KETAMINE [Suspect]
     Active Substance: KETAMINE
     Route: 030
  84. KETAMINE [Suspect]
     Active Substance: KETAMINE
  85. KETAMINE [Suspect]
     Active Substance: KETAMINE
  86. KETAMINE [Suspect]
     Active Substance: KETAMINE
     Route: 030
  87. RIZATRIPTAN [Suspect]
     Active Substance: RIZATRIPTAN
     Indication: Product used for unknown indication
     Route: 065
  88. RIZATRIPTAN [Suspect]
     Active Substance: RIZATRIPTAN
  89. NAPROXEN [Suspect]
     Active Substance: NAPROXEN
     Indication: Product used for unknown indication
     Route: 048
  90. NAPROXEN [Suspect]
     Active Substance: NAPROXEN
  91. NAPROXEN [Suspect]
     Active Substance: NAPROXEN
  92. NAPROXEN [Suspect]
     Active Substance: NAPROXEN
     Route: 048
  93. NAPROXEN [Suspect]
     Active Substance: NAPROXEN
     Route: 065
  94. NAPROXEN [Suspect]
     Active Substance: NAPROXEN
  95. NAPROXEN [Suspect]
     Active Substance: NAPROXEN
  96. NAPROXEN [Suspect]
     Active Substance: NAPROXEN
     Route: 065
  97. NORTRIPTYLINE [Suspect]
     Active Substance: NORTRIPTYLINE
     Indication: Product used for unknown indication
  98. NORTRIPTYLINE [Suspect]
     Active Substance: NORTRIPTYLINE
     Route: 065
  99. NORTRIPTYLINE [Suspect]
     Active Substance: NORTRIPTYLINE
     Route: 065
  100. NORTRIPTYLINE [Suspect]
     Active Substance: NORTRIPTYLINE
  101. ONDANSETRON HYDROCHLORIDE [Suspect]
     Active Substance: ONDANSETRON HYDROCHLORIDE
     Indication: Migraine
  102. ONDANSETRON HYDROCHLORIDE [Suspect]
     Active Substance: ONDANSETRON HYDROCHLORIDE
     Route: 065
  103. ONDANSETRON HYDROCHLORIDE [Suspect]
     Active Substance: ONDANSETRON HYDROCHLORIDE
     Route: 065
  104. ONDANSETRON HYDROCHLORIDE [Suspect]
     Active Substance: ONDANSETRON HYDROCHLORIDE
  105. PROPRANOLOL [Suspect]
     Active Substance: PROPRANOLOL HYDROCHLORIDE
     Indication: Migraine
  106. PROPRANOLOL [Suspect]
     Active Substance: PROPRANOLOL HYDROCHLORIDE
     Route: 065
  107. PROPRANOLOL [Suspect]
     Active Substance: PROPRANOLOL HYDROCHLORIDE
     Route: 065
  108. PROPRANOLOL [Suspect]
     Active Substance: PROPRANOLOL HYDROCHLORIDE
  109. TENORETIC [Suspect]
     Active Substance: ATENOLOL\CHLORTHALIDONE
     Indication: Product used for unknown indication
  110. TENORETIC [Suspect]
     Active Substance: ATENOLOL\CHLORTHALIDONE
  111. TENORETIC [Suspect]
     Active Substance: ATENOLOL\CHLORTHALIDONE
     Route: 065
  112. TENORETIC [Suspect]
     Active Substance: ATENOLOL\CHLORTHALIDONE
     Route: 065
  113. TENORETIC [Suspect]
     Active Substance: ATENOLOL\CHLORTHALIDONE
     Route: 048
  114. TENORETIC [Suspect]
     Active Substance: ATENOLOL\CHLORTHALIDONE
     Route: 048
  115. TENORETIC [Suspect]
     Active Substance: ATENOLOL\CHLORTHALIDONE
  116. TENORETIC [Suspect]
     Active Substance: ATENOLOL\CHLORTHALIDONE
  117. TENORETIC [Suspect]
     Active Substance: ATENOLOL\CHLORTHALIDONE
     Route: 048
  118. TENORETIC [Suspect]
     Active Substance: ATENOLOL\CHLORTHALIDONE
  119. TENORETIC [Suspect]
     Active Substance: ATENOLOL\CHLORTHALIDONE
  120. TENORETIC [Suspect]
     Active Substance: ATENOLOL\CHLORTHALIDONE
     Route: 048
  121. TENORETIC [Suspect]
     Active Substance: ATENOLOL\CHLORTHALIDONE
  122. TENORETIC [Suspect]
     Active Substance: ATENOLOL\CHLORTHALIDONE
  123. TENORETIC [Suspect]
     Active Substance: ATENOLOL\CHLORTHALIDONE
     Route: 048
  124. TENORETIC [Suspect]
     Active Substance: ATENOLOL\CHLORTHALIDONE
     Route: 048
  125. TOPAMAX [Suspect]
     Active Substance: TOPIRAMATE
     Indication: Product used for unknown indication
  126. TOPAMAX [Suspect]
     Active Substance: TOPIRAMATE
     Route: 065
  127. TOPAMAX [Suspect]
     Active Substance: TOPIRAMATE
     Route: 065
  128. TOPAMAX [Suspect]
     Active Substance: TOPIRAMATE
  129. TOPIRAMATE [Suspect]
     Active Substance: TOPIRAMATE
     Indication: Migraine
     Route: 065
  130. TOPIRAMATE [Suspect]
     Active Substance: TOPIRAMATE
  131. TOPIRAMATE [Suspect]
     Active Substance: TOPIRAMATE
  132. TOPIRAMATE [Suspect]
     Active Substance: TOPIRAMATE
     Route: 065
  133. TOPIRAMATE [Suspect]
     Active Substance: TOPIRAMATE
     Route: 048
  134. TOPIRAMATE [Suspect]
     Active Substance: TOPIRAMATE
  135. TOPIRAMATE [Suspect]
     Active Substance: TOPIRAMATE
  136. TOPIRAMATE [Suspect]
     Active Substance: TOPIRAMATE
     Route: 048
  137. TORADOL [Suspect]
     Active Substance: KETOROLAC TROMETHAMINE
     Indication: Migraine
  138. TORADOL [Suspect]
     Active Substance: KETOROLAC TROMETHAMINE
     Route: 065
  139. TORADOL [Suspect]
     Active Substance: KETOROLAC TROMETHAMINE
     Route: 065
  140. TORADOL [Suspect]
     Active Substance: KETOROLAC TROMETHAMINE
  141. TRAMADOL [Suspect]
     Active Substance: TRAMADOL
     Indication: Migraine
     Route: 065
  142. TRAMADOL [Suspect]
     Active Substance: TRAMADOL
  143. TRIAMCINOLONE [Suspect]
     Active Substance: TRIAMCINOLONE
     Indication: Migraine
  144. TRIAMCINOLONE [Suspect]
     Active Substance: TRIAMCINOLONE
     Route: 065
  145. TRIAMCINOLONE [Suspect]
     Active Substance: TRIAMCINOLONE
     Route: 065
  146. TRIAMCINOLONE [Suspect]
     Active Substance: TRIAMCINOLONE
  147. ACETAMINOPHEN [Suspect]
     Active Substance: ACETAMINOPHEN
     Indication: Product used for unknown indication
     Route: 065
  148. ACETAMINOPHEN [Suspect]
     Active Substance: ACETAMINOPHEN
  149. VIMOVO [Suspect]
     Active Substance: ESOMEPRAZOLE MAGNESIUM\NAPROXEN
     Indication: Product used for unknown indication
  150. VIMOVO [Suspect]
     Active Substance: ESOMEPRAZOLE MAGNESIUM\NAPROXEN
     Route: 065
  151. VIMOVO [Suspect]
     Active Substance: ESOMEPRAZOLE MAGNESIUM\NAPROXEN
     Route: 065
  152. VIMOVO [Suspect]
     Active Substance: ESOMEPRAZOLE MAGNESIUM\NAPROXEN
  153. VOLTAREN [Suspect]
     Active Substance: DICLOFENAC SODIUM
     Indication: Migraine
  154. VOLTAREN [Suspect]
     Active Substance: DICLOFENAC SODIUM
     Route: 065
  155. VOLTAREN [Suspect]
     Active Substance: DICLOFENAC SODIUM
     Route: 065
  156. VOLTAREN [Suspect]
     Active Substance: DICLOFENAC SODIUM
  157. ZOFRAN [Suspect]
     Active Substance: ONDANSETRON HYDROCHLORIDE
     Indication: Migraine
  158. ZOFRAN [Suspect]
     Active Substance: ONDANSETRON HYDROCHLORIDE
     Route: 065
  159. ZOFRAN [Suspect]
     Active Substance: ONDANSETRON HYDROCHLORIDE
     Route: 065
  160. ZOFRAN [Suspect]
     Active Substance: ONDANSETRON HYDROCHLORIDE
  161. ACETAMINOPHEN AND CODEINE [Suspect]
     Active Substance: ACETAMINOPHEN\CODEINE PHOSPHATE
     Indication: Product used for unknown indication
  162. ACETAMINOPHEN AND CODEINE [Suspect]
     Active Substance: ACETAMINOPHEN\CODEINE PHOSPHATE
     Route: 065
  163. ACETAMINOPHEN AND CODEINE [Suspect]
     Active Substance: ACETAMINOPHEN\CODEINE PHOSPHATE
     Route: 065
  164. ACETAMINOPHEN AND CODEINE [Suspect]
     Active Substance: ACETAMINOPHEN\CODEINE PHOSPHATE
  165. ALMOTRIPTAN MALATE [Suspect]
     Active Substance: ALMOTRIPTAN MALATE
     Indication: Product used for unknown indication
  166. ALMOTRIPTAN MALATE [Suspect]
     Active Substance: ALMOTRIPTAN MALATE
     Route: 065
  167. ALMOTRIPTAN MALATE [Suspect]
     Active Substance: ALMOTRIPTAN MALATE
     Route: 065
  168. ALMOTRIPTAN MALATE [Suspect]
     Active Substance: ALMOTRIPTAN MALATE
  169. ALMOTRIPTAN MALATE [Suspect]
     Active Substance: ALMOTRIPTAN MALATE
     Indication: Migraine
  170. ALMOTRIPTAN MALATE [Suspect]
     Active Substance: ALMOTRIPTAN MALATE
     Route: 065
  171. ALMOTRIPTAN MALATE [Suspect]
     Active Substance: ALMOTRIPTAN MALATE
     Route: 065
  172. ALMOTRIPTAN MALATE [Suspect]
     Active Substance: ALMOTRIPTAN MALATE
  173. BOTULINUM TOXIN TYPE A [Suspect]
     Active Substance: BOTULINUM TOXIN TYPE A
     Indication: Product used for unknown indication
  174. BOTULINUM TOXIN TYPE A [Suspect]
     Active Substance: BOTULINUM TOXIN TYPE A
     Route: 065
  175. BOTULINUM TOXIN TYPE A [Suspect]
     Active Substance: BOTULINUM TOXIN TYPE A
     Route: 065
  176. BOTULINUM TOXIN TYPE A [Suspect]
     Active Substance: BOTULINUM TOXIN TYPE A
  177. CODEINE [Suspect]
     Active Substance: CODEINE
     Indication: Migraine
  178. CODEINE [Suspect]
     Active Substance: CODEINE
     Route: 048
  179. CODEINE [Suspect]
     Active Substance: CODEINE
     Route: 048
  180. CODEINE [Suspect]
     Active Substance: CODEINE
  181. DEMEROL [Suspect]
     Active Substance: MEPERIDINE HYDROCHLORIDE
     Indication: Product used for unknown indication
  182. DEMEROL [Suspect]
     Active Substance: MEPERIDINE HYDROCHLORIDE
  183. DEMEROL [Suspect]
     Active Substance: MEPERIDINE HYDROCHLORIDE
     Route: 065
  184. DEMEROL [Suspect]
     Active Substance: MEPERIDINE HYDROCHLORIDE
     Route: 065
  185. DEMEROL [Suspect]
     Active Substance: MEPERIDINE HYDROCHLORIDE
  186. DEMEROL [Suspect]
     Active Substance: MEPERIDINE HYDROCHLORIDE
  187. DEMEROL [Suspect]
     Active Substance: MEPERIDINE HYDROCHLORIDE
     Route: 065
  188. DEMEROL [Suspect]
     Active Substance: MEPERIDINE HYDROCHLORIDE
     Route: 065
  189. DICLOFENAC SODIUM [Suspect]
     Active Substance: DICLOFENAC SODIUM
     Indication: Migraine
  190. DICLOFENAC SODIUM [Suspect]
     Active Substance: DICLOFENAC SODIUM
     Route: 065
  191. DICLOFENAC SODIUM [Suspect]
     Active Substance: DICLOFENAC SODIUM
     Route: 065
  192. DICLOFENAC SODIUM [Suspect]
     Active Substance: DICLOFENAC SODIUM
  193. DIHYDROERGOTAMINE [Suspect]
     Active Substance: DIHYDROERGOTAMINE
     Indication: Migraine
  194. DIHYDROERGOTAMINE [Suspect]
     Active Substance: DIHYDROERGOTAMINE
     Route: 065
  195. DIHYDROERGOTAMINE [Suspect]
     Active Substance: DIHYDROERGOTAMINE
     Route: 065
  196. DIHYDROERGOTAMINE [Suspect]
     Active Substance: DIHYDROERGOTAMINE
  197. DULOXETINE HYDROCHLORIDE [Suspect]
     Active Substance: DULOXETINE HYDROCHLORIDE
     Indication: Migraine
  198. DULOXETINE HYDROCHLORIDE [Suspect]
     Active Substance: DULOXETINE HYDROCHLORIDE
     Route: 065
  199. DULOXETINE HYDROCHLORIDE [Suspect]
     Active Substance: DULOXETINE HYDROCHLORIDE
     Route: 065
  200. DULOXETINE HYDROCHLORIDE [Suspect]
     Active Substance: DULOXETINE HYDROCHLORIDE
  201. ESOMEPRAZOLE MAGNESIUM [Suspect]
     Active Substance: ESOMEPRAZOLE MAGNESIUM
     Indication: Product used for unknown indication
  202. ESOMEPRAZOLE MAGNESIUM [Suspect]
     Active Substance: ESOMEPRAZOLE MAGNESIUM
     Route: 048
  203. ESOMEPRAZOLE MAGNESIUM [Suspect]
     Active Substance: ESOMEPRAZOLE MAGNESIUM
     Route: 048
  204. ESOMEPRAZOLE MAGNESIUM [Suspect]
     Active Substance: ESOMEPRAZOLE MAGNESIUM
  205. HYDROMORPHONE HYDROCHLORIDE [Suspect]
     Active Substance: HYDROMORPHONE HYDROCHLORIDE
     Indication: Migraine
  206. HYDROMORPHONE HYDROCHLORIDE [Suspect]
     Active Substance: HYDROMORPHONE HYDROCHLORIDE
     Route: 065
  207. HYDROMORPHONE HYDROCHLORIDE [Suspect]
     Active Substance: HYDROMORPHONE HYDROCHLORIDE
     Route: 065
  208. HYDROMORPHONE HYDROCHLORIDE [Suspect]
     Active Substance: HYDROMORPHONE HYDROCHLORIDE
  209. KETAMINE HYDROCHLORIDE [Suspect]
     Active Substance: KETAMINE HYDROCHLORIDE
     Indication: Migraine
  210. KETAMINE HYDROCHLORIDE [Suspect]
     Active Substance: KETAMINE HYDROCHLORIDE
     Route: 065
  211. KETAMINE HYDROCHLORIDE [Suspect]
     Active Substance: KETAMINE HYDROCHLORIDE
     Route: 065
  212. KETAMINE HYDROCHLORIDE [Suspect]
     Active Substance: KETAMINE HYDROCHLORIDE
  213. MAXALT [Suspect]
     Active Substance: RIZATRIPTAN BENZOATE
     Indication: Product used for unknown indication
  214. MAXALT [Suspect]
     Active Substance: RIZATRIPTAN BENZOATE
     Route: 065
  215. MAXALT [Suspect]
     Active Substance: RIZATRIPTAN BENZOATE
     Route: 065
  216. MAXALT [Suspect]
     Active Substance: RIZATRIPTAN BENZOATE
  217. MORPHINE [Suspect]
     Active Substance: MORPHINE
     Indication: Migraine
  218. MORPHINE [Suspect]
     Active Substance: MORPHINE
     Route: 065
  219. MORPHINE [Suspect]
     Active Substance: MORPHINE
     Route: 065
  220. MORPHINE [Suspect]
     Active Substance: MORPHINE
  221. NORTRIPTYLINE HYDROCHLORIDE [Suspect]
     Active Substance: NORTRIPTYLINE HYDROCHLORIDE
     Indication: Product used for unknown indication
  222. NORTRIPTYLINE HYDROCHLORIDE [Suspect]
     Active Substance: NORTRIPTYLINE HYDROCHLORIDE
     Route: 030
  223. NORTRIPTYLINE HYDROCHLORIDE [Suspect]
     Active Substance: NORTRIPTYLINE HYDROCHLORIDE
     Route: 030
  224. NORTRIPTYLINE HYDROCHLORIDE [Suspect]
     Active Substance: NORTRIPTYLINE HYDROCHLORIDE
  225. ONDANSETRON [Suspect]
     Active Substance: ONDANSETRON
     Indication: Migraine
  226. ONDANSETRON [Suspect]
     Active Substance: ONDANSETRON
     Route: 065
  227. ONDANSETRON [Suspect]
     Active Substance: ONDANSETRON
     Route: 065
  228. ONDANSETRON [Suspect]
     Active Substance: ONDANSETRON
  229. PROPRANOLOL HYDROCHLORIDE [Suspect]
     Active Substance: PROPRANOLOL HYDROCHLORIDE
     Indication: Migraine
  230. PROPRANOLOL HYDROCHLORIDE [Suspect]
     Active Substance: PROPRANOLOL HYDROCHLORIDE
     Route: 065
  231. PROPRANOLOL HYDROCHLORIDE [Suspect]
     Active Substance: PROPRANOLOL HYDROCHLORIDE
     Route: 065
  232. PROPRANOLOL HYDROCHLORIDE [Suspect]
     Active Substance: PROPRANOLOL HYDROCHLORIDE
  233. DULOXETINE [Suspect]
     Active Substance: DULOXETINE
     Indication: Migraine
  234. DULOXETINE [Suspect]
     Active Substance: DULOXETINE
     Route: 065
  235. DULOXETINE [Suspect]
     Active Substance: DULOXETINE
     Route: 065
  236. DULOXETINE [Suspect]
     Active Substance: DULOXETINE
  237. TOPIRAMATE [Suspect]
     Active Substance: TOPIRAMATE
     Indication: Product used for unknown indication
  238. TOPIRAMATE [Suspect]
     Active Substance: TOPIRAMATE
     Route: 065
  239. TOPIRAMATE [Suspect]
     Active Substance: TOPIRAMATE
     Route: 065
  240. TOPIRAMATE [Suspect]
     Active Substance: TOPIRAMATE
  241. TRAMADOL HYDROCHLORIDE [Suspect]
     Active Substance: TRAMADOL HYDROCHLORIDE
     Indication: Migraine
  242. TRAMADOL HYDROCHLORIDE [Suspect]
     Active Substance: TRAMADOL HYDROCHLORIDE
     Route: 065
  243. TRAMADOL HYDROCHLORIDE [Suspect]
     Active Substance: TRAMADOL HYDROCHLORIDE
     Route: 065
  244. TRAMADOL HYDROCHLORIDE [Suspect]
     Active Substance: TRAMADOL HYDROCHLORIDE
  245. TRIAMCINOLONE ACETONIDE [Suspect]
     Active Substance: TRIAMCINOLONE ACETONIDE
     Indication: Migraine
  246. TRIAMCINOLONE ACETONIDE [Suspect]
     Active Substance: TRIAMCINOLONE ACETONIDE
     Route: 065
  247. TRIAMCINOLONE ACETONIDE [Suspect]
     Active Substance: TRIAMCINOLONE ACETONIDE
     Route: 065
  248. TRIAMCINOLONE ACETONIDE [Suspect]
     Active Substance: TRIAMCINOLONE ACETONIDE
  249. TRIAMCINOLONE ACETONIDE [Suspect]
     Active Substance: TRIAMCINOLONE ACETONIDE
     Indication: Migraine
  250. TRIAMCINOLONE ACETONIDE [Suspect]
     Active Substance: TRIAMCINOLONE ACETONIDE
     Route: 065
  251. TRIAMCINOLONE ACETONIDE [Suspect]
     Active Substance: TRIAMCINOLONE ACETONIDE
     Route: 065
  252. TRIAMCINOLONE ACETONIDE [Suspect]
     Active Substance: TRIAMCINOLONE ACETONIDE
  253. TYLENOL [Suspect]
     Active Substance: ACETAMINOPHEN
     Indication: Product used for unknown indication
  254. TYLENOL [Suspect]
     Active Substance: ACETAMINOPHEN
     Route: 065
  255. TYLENOL [Suspect]
     Active Substance: ACETAMINOPHEN
     Route: 065
  256. TYLENOL [Suspect]
     Active Substance: ACETAMINOPHEN
  257. DICLOFENAC DIETHYLAMINE [Suspect]
     Active Substance: DICLOFENAC DIETHYLAMINE
     Indication: Migraine
  258. DICLOFENAC DIETHYLAMINE [Suspect]
     Active Substance: DICLOFENAC DIETHYLAMINE
     Route: 065
  259. DICLOFENAC DIETHYLAMINE [Suspect]
     Active Substance: DICLOFENAC DIETHYLAMINE
     Route: 065
  260. DICLOFENAC DIETHYLAMINE [Suspect]
     Active Substance: DICLOFENAC DIETHYLAMINE
  261. VENLAFAXINE HYDROCHLORIDE [Suspect]
     Active Substance: VENLAFAXINE HYDROCHLORIDE
     Indication: Migraine
  262. VENLAFAXINE HYDROCHLORIDE [Suspect]
     Active Substance: VENLAFAXINE HYDROCHLORIDE
     Route: 065
  263. VENLAFAXINE HYDROCHLORIDE [Suspect]
     Active Substance: VENLAFAXINE HYDROCHLORIDE
     Route: 065
  264. VENLAFAXINE HYDROCHLORIDE [Suspect]
     Active Substance: VENLAFAXINE HYDROCHLORIDE
  265. ACETAMINOPHEN [Suspect]
     Active Substance: ACETAMINOPHEN
     Indication: Migraine
  266. ACETAMINOPHEN [Suspect]
     Active Substance: ACETAMINOPHEN
     Route: 048
  267. ACETAMINOPHEN [Suspect]
     Active Substance: ACETAMINOPHEN
     Route: 048
  268. ACETAMINOPHEN [Suspect]
     Active Substance: ACETAMINOPHEN

REACTIONS (9)
  - Sedation [Unknown]
  - Nephrolithiasis [Unknown]
  - Nightmare [Unknown]
  - Hyperhidrosis [Unknown]
  - Nausea [Unknown]
  - Drug ineffective [Unknown]
  - Off label use [Unknown]
  - Product use in unapproved indication [Unknown]
  - Product used for unknown indication [Unknown]
